FAERS Safety Report 12389585 (Version 1)
Quarter: 2016Q2

REPORT INFORMATION
  Report Type: Spontaneous
  Country: BR (occurrence: BR)
  Receive Date: 20160520
  Receipt Date: 20160520
  Transmission Date: 20160815
  Serious: Yes (Hospitalization, Other)
  Sender: FDA-Public Use
  Company Number: BR-ABBVIE-16P-020-1633403-00

PATIENT
  Age: 43 Year
  Sex: Female
  Weight: 77 kg

DRUGS (14)
  1. METIOCOLIN B12 [Concomitant]
     Indication: ROUTINE HEALTH MAINTENANCE
  2. SYNTHROID [Suspect]
     Active Substance: LEVOTHYROXINE SODIUM
     Route: 048
     Dates: start: 2011, end: 2014
  3. GINKGO BILOBA [Concomitant]
     Active Substance: GINKGO
     Indication: ROUTINE HEALTH MAINTENANCE
  4. VITAMIN E [Concomitant]
     Active Substance: .ALPHA.-TOCOPHEROL
     Indication: ROUTINE HEALTH MAINTENANCE
  5. SYNTHROID [Suspect]
     Active Substance: LEVOTHYROXINE SODIUM
     Indication: HYPOTHYROIDISM
     Dosage: 100 MCG (30 MINUTES BEFORE BREAKFAST (FASTING))
     Route: 048
     Dates: start: 2014
  6. VITAMIN E [Concomitant]
     Active Substance: .ALPHA.-TOCOPHEROL
     Indication: NUTRITIONAL SUPPLEMENTATION
     Route: 048
     Dates: start: 2009
  7. OMEGA 3 [Concomitant]
     Active Substance: OMEGA-3 FATTY ACIDS
     Indication: ROUTINE HEALTH MAINTENANCE
  8. GINKGO BILOBA [Concomitant]
     Active Substance: GINKGO
     Indication: NUTRITIONAL SUPPLEMENTATION
     Route: 048
     Dates: start: 2009
  9. VITAMIN B [Concomitant]
     Active Substance: VITAMIN B
     Indication: ROUTINE HEALTH MAINTENANCE
  10. METIOCOLIN B12 [Concomitant]
     Indication: NUTRITIONAL SUPPLEMENTATION
     Route: 048
     Dates: start: 2009
  11. VITAMIN B [Concomitant]
     Active Substance: VITAMIN B
     Indication: NUTRITIONAL SUPPLEMENTATION
     Route: 048
     Dates: start: 2009
  12. GINSENG [Concomitant]
     Active Substance: ASIAN GINSENG
     Indication: ROUTINE HEALTH MAINTENANCE
  13. OMEGA 3 [Concomitant]
     Active Substance: OMEGA-3 FATTY ACIDS
     Indication: NUTRITIONAL SUPPLEMENTATION
     Route: 048
     Dates: start: 2009
  14. GINSENG [Concomitant]
     Active Substance: ASIAN GINSENG
     Indication: NUTRITIONAL SUPPLEMENTATION
     Route: 048
     Dates: start: 2009

REACTIONS (2)
  - Mitral valve incompetence [Recovered/Resolved]
  - Drug dose omission [Unknown]

NARRATIVE: CASE EVENT DATE: 20120330
